FAERS Safety Report 9182069 (Version 4)
Quarter: 2013Q2

REPORT INFORMATION
  Report Type: Spontaneous
  Country: DK (occurrence: DK)
  Receive Date: 20130322
  Receipt Date: 20130419
  Transmission Date: 20140414
  Serious: Yes (Death, Hospitalization, Other)
  Sender: FDA-Public Use
  Company Number: DK-ELI_LILLY_AND_COMPANY-DK201303004489

PATIENT
  Age: 43 Year
  Sex: Male

DRUGS (7)
  1. OLANZAPINE [Suspect]
     Dosage: 1 DF, UNKNOWN
  2. METHADONE [Concomitant]
     Dosage: 1 DF, UNKNOWN
  3. CITALOPRAM [Concomitant]
     Dosage: 1 DF, UNKNOWN
  4. CHLORPROTHIXEN [Concomitant]
     Dosage: 1 DF, UNKNOWN
  5. DIAZEPAM [Concomitant]
     Dosage: 1 DF, UNKNOWN
  6. OXAZEPAM [Concomitant]
     Dosage: 1 DF, UNKNOWN
  7. ZOPICLONE [Concomitant]
     Dosage: 1 DF, UNKNOWN

REACTIONS (4)
  - Toxicity to various agents [Fatal]
  - Psychotic disorder [Unknown]
  - Fluid overload [Unknown]
  - Arteriosclerosis coronary artery [Unknown]
